FAERS Safety Report 6763685-0 (Version None)
Quarter: 2010Q2

REPORT INFORMATION
  Report Type: 
  Country: None (occurrence: None)
  Receive Date: 20100608
  Receipt Date: 20100528
  Transmission Date: 20101027
  Serious: Yes (Hospitalization)
  Sender: FDA-Public Use
  Company Number: UTC-001126

PATIENT
  Age: 13 Year
  Sex: Female
  Weight: 47.6 kg

DRUGS (11)
  1. TYVASO [Suspect]
     Indication: PULMONARY HYPERTENSION
     Dosage: 240 MCG (60 MCG, 4 IN 1D), INHALATION
     Dates: start: 20100209
  2. FUROSEMIDE [Concomitant]
  3. TYLENOL W/CODINE NO. 3 (PANADEINE CO) [Concomitant]
  4. COUMADIN [Concomitant]
  5. REVATIO [Concomitant]
  6. EXJADE [Concomitant]
  7. FOLIC ACID [Concomitant]
  8. PREVACID [Concomitant]
  9. TRACLEER (BESENTAN) [Concomitant]
  10. ASPIRIN [Concomitant]
  11. MIRALAX [Concomitant]

REACTIONS (1)
  - PERICARDIAL EFFUSION [None]
